FAERS Safety Report 14995462 (Version 3)
Quarter: 2020Q3

REPORT INFORMATION
  Report Type: Spontaneous
  Country: US (occurrence: US)
  Receive Date: 20180611
  Receipt Date: 20200817
  Transmission Date: 20201102
  Serious: No
  Sender: FDA-Public Use
  Company Number: US-SA-2018SA153547

PATIENT

DRUGS (23)
  1. HYDROXYZINE [Concomitant]
     Active Substance: HYDROXYZINE HYDROCHLORIDE
  2. CLOPIDOGREL [Concomitant]
     Active Substance: CLOPIDOGREL BISULFATE
  3. PREDNISONE. [Concomitant]
     Active Substance: PREDNISONE
  4. LEVOTHYROXINE SODIUM. [Concomitant]
     Active Substance: LEVOTHYROXINE SODIUM
  5. CLINDAMYCIN. [Concomitant]
     Active Substance: CLINDAMYCIN
  6. TRAMADOL. [Concomitant]
     Active Substance: TRAMADOL
  7. FLUTICASONE. [Concomitant]
     Active Substance: FLUTICASONE
  8. LORATADINE. [Concomitant]
     Active Substance: LORATADINE
  9. DUPIXENT [Suspect]
     Active Substance: DUPILUMAB
     Indication: DERMATITIS ATOPIC
     Dosage: 300 MG, QOW
     Dates: start: 20180502
  10. VENTOLIN [Concomitant]
     Active Substance: ALBUTEROL SULFATE
  11. ATORVASTATIN [Concomitant]
     Active Substance: ATORVASTATIN
  12. TOBRAMYCIN/DEXAMET [Concomitant]
  13. ZYLET [Concomitant]
     Active Substance: LOTEPREDNOL ETABONATE\TOBRAMYCIN
  14. LISINOPRIL. [Concomitant]
     Active Substance: LISINOPRIL
  15. ATENOLOL. [Concomitant]
     Active Substance: ATENOLOL
  16. DESOXIMETASON [Concomitant]
     Active Substance: DESOXIMETASONE
  17. LATANOPROST. [Concomitant]
     Active Substance: LATANOPROST
  18. DESONIDE. [Concomitant]
     Active Substance: DESONIDE
  19. SYMBICORT [Concomitant]
     Active Substance: BUDESONIDE\FORMOTEROL FUMARATE DIHYDRATE
  20. FLUOROMETHOLON [Concomitant]
     Active Substance: FLUOROMETHOLONE
  21. HYDROCHLOROTH [Concomitant]
     Active Substance: HYDROCHLOROTHIAZIDE
  22. HYDROCORTISON [HYDROCORTISONE] [Concomitant]
  23. DUPIXENT [Suspect]
     Active Substance: DUPILUMAB
     Indication: POLYMYOSITIS
     Dosage: 300 MG, QOW
     Route: 058
     Dates: start: 20180410

REACTIONS (6)
  - Pruritus [Unknown]
  - Urticaria [Not Recovered/Not Resolved]
  - Erythema [Unknown]
  - Skin warm [Unknown]
  - Eye infection [Not Recovered/Not Resolved]
  - Dermatitis atopic [Unknown]

NARRATIVE: CASE EVENT DATE: 201805
